FAERS Safety Report 5256080-7 (Version None)
Quarter: 2007Q1

REPORT INFORMATION
  Report Type: 
  Country: None (occurrence: None)
  Receive Date: 20070301
  Receipt Date: 20070215
  Transmission Date: 20070707
  Serious: Yes (Other)
  Sender: FDA-Public Use
  Company Number: 2007RR-05848

PATIENT
  Age: 82 Year
  Sex: Female
  Weight: 54 kg

DRUGS (3)
  1. PARACETAMOL(ACETAMINOPHEN/PARACETAMOL) UNKNOWN [Suspect]
     Dosage: 500 MG, 1/1 TOTAL, ORAL
     Route: 048
     Dates: end: 20070124
  2. ATENOLOL [Concomitant]
  3. CAMOMILE [Concomitant]

REACTIONS (1)
  - FACE OEDEMA [None]
